FAERS Safety Report 9457264 (Version 1)
Quarter: 2013Q3

REPORT INFORMATION
  Report Type: Spontaneous
  Country: US (occurrence: US)
  Receive Date: 20130814
  Receipt Date: 20130814
  Transmission Date: 20140515
  Serious: Yes (Other)
  Sender: FDA-Public Use
  Company Number: PHEH2013US016846

PATIENT
  Sex: Male

DRUGS (5)
  1. GLEEVEC [Suspect]
     Indication: GASTROINTESTINAL STROMAL TUMOUR
     Dosage: UNK UKN, UNK
  2. PENICILLIN NOS [Suspect]
     Dosage: UNK UKN, UNK
  3. ESOMEPRAZOLE [Concomitant]
     Dosage: 20 MG, UNK
     Route: 048
  4. MULTIVIT//VITAMINS NOS [Concomitant]
     Dosage: 1 DF, DAILY
     Route: 048
  5. TYLENOL [Concomitant]
     Dosage: UNK UKN, UNK
     Route: 048

REACTIONS (15)
  - Renal cyst [Unknown]
  - Myelopathy [Unknown]
  - Atelectasis [Unknown]
  - Arteriosclerosis [Unknown]
  - Vascular calcification [Unknown]
  - Suicidal ideation [Unknown]
  - Gastrointestinal stromal tumour [Unknown]
  - Neoplasm recurrence [Unknown]
  - Testicular pain [Unknown]
  - Exposure to toxic agent [Unknown]
  - Melanocytic naevus [Unknown]
  - Tinea pedis [Unknown]
  - Constipation [Unknown]
  - Tinnitus [Unknown]
  - Dyspnoea [Unknown]
